FAERS Safety Report 25591477 (Version 1)
Quarter: 2025Q3

REPORT INFORMATION
  Report Type: Report from Study
  Country: PH (occurrence: PH)
  Receive Date: 20250722
  Receipt Date: 20250722
  Transmission Date: 20251021
  Serious: Yes (Death, Hospitalization)
  Sender: MERCK SHARP & DOHME LLC
  Company Number: PH-009507513-2304PHL006704

PATIENT
  Sex: Male

DRUGS (20)
  1. KEYTRUDA [Suspect]
     Active Substance: PEMBROLIZUMAB
     Indication: Transitional cell carcinoma
     Dosage: DOSE DESCRIPTION : 200 MILLIGRAM, EVERY 3 WEEKS; 1ST CYCLE?DAILY DOSE : 9.4 MILLIGRAM?REGIMEN DOS...
     Route: 042
     Dates: start: 20230223, end: 20230223
  2. KEYTRUDA [Suspect]
     Active Substance: PEMBROLIZUMAB
     Indication: Transitional cell carcinoma
     Dosage: DOSE DESCRIPTION : 200 MILLIGRAM, EVERY 3 WEEKS; THE 2ND CYCLE?DAILY DOSE : 9.4 MILLIGRAM?REGIMEN...
     Route: 042
     Dates: start: 20230317, end: 20230317
  3. KEYTRUDA [Suspect]
     Active Substance: PEMBROLIZUMAB
     Indication: Transitional cell carcinoma
     Dosage: DOSE DESCRIPTION : 200 MILLIGRAM, EVERY 3 WEEKS; THE 3RD CYCLE?DAILY DOSE : 9.4 MILLIGRAM?REGIMEN...
     Route: 042
     Dates: start: 20230413, end: 20230413
  4. KEYTRUDA [Suspect]
     Active Substance: PEMBROLIZUMAB
     Indication: Transitional cell carcinoma
     Dosage: DOSE DESCRIPTION : 200 MILLIGRAM, EVERY 3 WEEKS; THE 4TH CYCLE?DAILY DOSE : 9.4 MILLIGRAM?REGIMEN...
     Route: 042
     Dates: start: 20230524, end: 20230524
  5. KEYTRUDA [Suspect]
     Active Substance: PEMBROLIZUMAB
     Indication: Transitional cell carcinoma
     Dosage: DOSE DESCRIPTION : 200 MILLIGRAM, EVERY 3 WEEKS; THE 5TH CYCLE?DAILY DOSE : 9.4 MILLIGRAM?REGIMEN...
     Route: 042
     Dates: start: 20230621, end: 20230621
  6. KEYTRUDA [Suspect]
     Active Substance: PEMBROLIZUMAB
     Indication: Transitional cell carcinoma
     Dosage: DOSE DESCRIPTION : 200 MILLIGRAM, Q3W,THE 6TH CYCLE?DAILY DOSE : 9.4 MILLIGRAM?REGIMEN DOSE : 200...
     Route: 042
     Dates: start: 20230720, end: 20230720
  7. KEYTRUDA [Suspect]
     Active Substance: PEMBROLIZUMAB
     Indication: Transitional cell carcinoma
     Dosage: DOSE DESCRIPTION : 200 MILLIGRAM, Q3W, THE 7TH CYCLE?DAILY DOSE : 9.4 MILLIGRAM?REGIMEN DOSE : 20...
     Route: 042
     Dates: start: 20230912, end: 20230912
  8. KEYTRUDA [Suspect]
     Active Substance: PEMBROLIZUMAB
     Indication: Transitional cell carcinoma
     Dosage: DOSE DESCRIPTION : 200 MILLIGRAM, Q3W, THE 8TH CYCLE?DAILY DOSE : 9.4 MILLIGRAM?REGIMEN DOSE : 20...
     Route: 042
     Dates: start: 20231114, end: 20231114
  9. KEYTRUDA [Suspect]
     Active Substance: PEMBROLIZUMAB
     Indication: Transitional cell carcinoma
     Dosage: DOSE DESCRIPTION : 200 MILLIGRAM, EVERY 3 WEEKS, THE 9TH CYCLE?DAILY DOSE : 9.4 MILLIGRAM?REGIMEN...
     Route: 042
     Dates: start: 20240719, end: 20240719
  10. KEYTRUDA [Suspect]
     Active Substance: PEMBROLIZUMAB
     Indication: Transitional cell carcinoma
     Dosage: DOSE DESCRIPTION : 200 MILLIGRAM, EVERY 3 WEEKS, THE 10TH CYCLE?DAILY DOSE : 9.4 MILLIGRAM?REGIME...
     Route: 042
     Dates: start: 20240813, end: 20240813
  11. KEYTRUDA [Suspect]
     Active Substance: PEMBROLIZUMAB
     Indication: Transitional cell carcinoma
     Dosage: DOSE DESCRIPTION : 200 MILLIGRAM, EVERY 3 WEEKS, THE 11TH CYCLE?DAILY DOSE : 9.4 MILLIGRAM?REGIME...
     Route: 042
     Dates: start: 20240911, end: 20240911
  12. KEYTRUDA [Suspect]
     Active Substance: PEMBROLIZUMAB
     Indication: Transitional cell carcinoma
     Dosage: DOSE DESCRIPTION : 200 MILLIGRAM, EVERY 3 WEEKS, THE 12TH CYCLE?DAILY DOSE : 9.4 MILLIGRAM?REGIME...
     Route: 042
     Dates: start: 20241004, end: 20241004
  13. KEYTRUDA [Suspect]
     Active Substance: PEMBROLIZUMAB
     Indication: Transitional cell carcinoma
     Dosage: DOSE DESCRIPTION : 200 MILLIGRAM, EVERY 3 WEEKS, THE 13TH CYCLE?DAILY DOSE : 9.4 MILLIGRAM?REGIME...
     Route: 042
     Dates: start: 20241106, end: 20241106
  14. KEYTRUDA [Suspect]
     Active Substance: PEMBROLIZUMAB
     Indication: Transitional cell carcinoma
     Dosage: DOSE DESCRIPTION : 200 MILLIGRAM, EVERY 3 WEEKS, THE 14TH CYCLE?DAILY DOSE : 9.4 MILLIGRAM?REGIME...
     Route: 042
     Dates: start: 20241204, end: 20241204
  15. KEYTRUDA [Suspect]
     Active Substance: PEMBROLIZUMAB
     Indication: Transitional cell carcinoma
     Dosage: DOSE DESCRIPTION : 200 MILLIGRAM, EVERY 3 WEEKS, THE 15TH CYCLE?DAILY DOSE : 9.4 MILLIGRAM?REGIME...
     Route: 042
     Dates: start: 20250107, end: 20250107
  16. KEYTRUDA [Suspect]
     Active Substance: PEMBROLIZUMAB
     Indication: Transitional cell carcinoma
     Dosage: DOSE DESCRIPTION : 200 MILLIGRAM, EVERY 3 WEEKS, THE 16TH CYCLE?DAILY DOSE : 9.4 MILLIGRAM?REGIME...
     Route: 042
     Dates: start: 20250203, end: 20250203
  17. KEYTRUDA [Suspect]
     Active Substance: PEMBROLIZUMAB
     Indication: Transitional cell carcinoma
     Dosage: DOSE DESCRIPTION : 200 MILLIGRAM, EVERY 3 WEEKS, THE 17TH CYCLE?DAILY DOSE : 9.4 MILLIGRAM?REGIME...
     Route: 042
     Dates: start: 20250303, end: 20250303
  18. KEYTRUDA [Suspect]
     Active Substance: PEMBROLIZUMAB
     Indication: Transitional cell carcinoma
     Dosage: DOSE DESCRIPTION : 200 MILLIGRAM, EVERY 3 WEEKS, THE 18TH CYCLE?DAILY DOSE : 9.4 MILLIGRAM?REGIME...
     Route: 042
     Dates: start: 20250329, end: 20250329
  19. KEYTRUDA [Suspect]
     Active Substance: PEMBROLIZUMAB
     Indication: Transitional cell carcinoma
     Dosage: DOSE DESCRIPTION : 200 MILLIGRAM, EVERY 3 WEEKS, THE 19TH CYCLE?DAILY DOSE : 9.4 MILLIGRAM?REGIME...
     Route: 042
     Dates: start: 20250426, end: 20250426
  20. KEYTRUDA [Suspect]
     Active Substance: PEMBROLIZUMAB
     Indication: Transitional cell carcinoma
     Dosage: DOSE DESCRIPTION : 200 MILLIGRAM, EVERY 3 WEEKS, THE 20TH CYCLE?DAILY DOSE : 9.4 MILLIGRAM?REGIME...
     Route: 042
     Dates: start: 20250530, end: 20250530

REACTIONS (21)
  - Death [Fatal]
  - Drug ineffective [Unknown]
  - Rash [Recovering/Resolving]
  - Inappropriate schedule of product administration [Unknown]
  - Inappropriate schedule of product administration [Unknown]
  - Inappropriate schedule of product administration [Unknown]
  - Inappropriate schedule of product administration [Unknown]
  - Inappropriate schedule of product administration [Unknown]
  - Inappropriate schedule of product administration [Unknown]
  - Inappropriate schedule of product administration [Unknown]
  - Inappropriate schedule of product administration [Unknown]
  - Inappropriate schedule of product administration [Unknown]
  - Inappropriate schedule of product administration [Unknown]
  - Inappropriate schedule of product administration [Unknown]
  - Inappropriate schedule of product administration [Unknown]
  - Inappropriate schedule of product administration [Unknown]
  - Inappropriate schedule of product administration [Unknown]
  - Inappropriate schedule of product administration [Unknown]
  - Inappropriate schedule of product administration [Unknown]
  - Inappropriate schedule of product administration [Unknown]
  - Inappropriate schedule of product administration [Unknown]

NARRATIVE: CASE EVENT DATE: 20230101
